FAERS Safety Report 23345666 (Version 1)
Quarter: 2023Q4

REPORT INFORMATION
  Report Type: Spontaneous
  Country: DK (occurrence: DK)
  Receive Date: 20231228
  Receipt Date: 20231228
  Transmission Date: 20240110
  Serious: Yes (Death, Life-Threatening)
  Sender: FDA-Public Use
  Company Number: None

PATIENT
  Age: 5 Year
  Sex: Male
  Weight: 18 kg

DRUGS (36)
  1. PENICILLIN G [Suspect]
     Active Substance: PENICILLIN G
     Indication: Pneumococcal sepsis
     Dosage: UNK
     Route: 065
  2. CEFUROXIME [Suspect]
     Active Substance: CEFUROXIME
     Indication: Pneumonia
     Dosage: UNK
     Route: 042
  3. CEFUROXIME [Suspect]
     Active Substance: CEFUROXIME
     Indication: Antibiotic therapy
  4. CIPROFLOXACIN [Suspect]
     Active Substance: CIPROFLOXACIN
     Indication: Pneumococcal sepsis
     Route: 065
  5. AMOXICILLIN\CLAVULANATE POTASSIUM [Suspect]
     Active Substance: AMOXICILLIN\CLAVULANATE POTASSIUM
     Dosage: UNK
     Route: 065
     Dates: start: 20160714, end: 20160720
  6. AMOXICILLIN\CLAVULANATE POTASSIUM [Suspect]
     Active Substance: AMOXICILLIN\CLAVULANATE POTASSIUM
     Indication: Pneumonia
     Dosage: UNKNOWN
     Route: 065
     Dates: start: 20150611, end: 20160720
  7. DORNASE ALFA [Suspect]
     Active Substance: DORNASE ALFA
     Indication: Interstitial lung disease
     Dosage: UNKNOWN
     Route: 065
  8. DURAGESIC [Suspect]
     Active Substance: FENTANYL
     Indication: Product used for unknown indication
     Route: 065
  9. DURAGESIC [Suspect]
     Active Substance: FENTANYL
     Indication: Product used for unknown indication
     Route: 065
  10. FENTANYL [Suspect]
     Active Substance: FENTANYL\FENTANYL CITRATE
     Indication: Pneumonia aspiration
     Dosage: UNK
     Route: 042
  11. FENTANYL [Suspect]
     Active Substance: FENTANYL\FENTANYL CITRATE
     Indication: Circulatory collapse
     Dosage: UNK
     Route: 065
  12. FENTANYL [Suspect]
     Active Substance: FENTANYL\FENTANYL CITRATE
     Indication: Brain injury
  13. FENTANYL [Suspect]
     Active Substance: FENTANYL\FENTANYL CITRATE
     Indication: Cerebral ischaemia
  14. FENTANYL [Suspect]
     Active Substance: FENTANYL\FENTANYL CITRATE
     Indication: Interstitial lung disease
  15. FENTANYL [Suspect]
     Active Substance: FENTANYL\FENTANYL CITRATE
     Indication: Intestinal ischaemia
  16. FENTANYL [Suspect]
     Active Substance: FENTANYL\FENTANYL CITRATE
     Indication: Intestinal ischaemia
  17. FENTANYL [Suspect]
     Active Substance: FENTANYL\FENTANYL CITRATE
     Indication: Pneumococcal infection
  18. FENTANYL [Suspect]
     Active Substance: FENTANYL\FENTANYL CITRATE
     Indication: Pneumonia
  19. FENTANYL [Suspect]
     Active Substance: FENTANYL\FENTANYL CITRATE
     Indication: Respiratory tract infection
  20. GENTAMICIN [Suspect]
     Active Substance: GENTAMICIN
     Indication: Antibiotic therapy
     Dosage: UNK
     Route: 042
  21. DEXTROSE [Suspect]
     Active Substance: DEXTROSE\DEXTROSE MONOHYDRATE
     Indication: Pneumonia
     Dosage: UNK
     Route: 065
  22. DEXTROSE [Suspect]
     Active Substance: DEXTROSE\DEXTROSE MONOHYDRATE
     Indication: Vomiting
  23. M-M-RVAXPRO [Suspect]
     Active Substance: MEASLES VIRUS STRAIN ENDERS^ ATTENUATED EDMONSTON LIVE ANTIGEN\MUMPS VIRUS STRAIN B LEVEL JERYL LYNN
     Indication: Mumps immunisation
     Route: 065
  24. M-M-RVAXPRO [Suspect]
     Active Substance: MEASLES VIRUS STRAIN ENDERS^ ATTENUATED EDMONSTON LIVE ANTIGEN\MUMPS VIRUS STRAIN B LEVEL JERYL LYNN
     Indication: Measles immunisation
  25. M-M-RVAXPRO [Suspect]
     Active Substance: MEASLES VIRUS STRAIN ENDERS^ ATTENUATED EDMONSTON LIVE ANTIGEN\MUMPS VIRUS STRAIN B LEVEL JERYL LYNN
     Indication: Mumps immunisation
  26. M-M-RVAXPRO [Suspect]
     Active Substance: MEASLES VIRUS STRAIN ENDERS^ ATTENUATED EDMONSTON LIVE ANTIGEN\MUMPS VIRUS STRAIN B LEVEL JERYL LYNN
     Indication: Rubella immunisation
  27. MEROPENEM [Suspect]
     Active Substance: MEROPENEM
     Indication: Antibiotic therapy
     Dosage: UNK
     Route: 065
  28. PIPERACILLIN SODIUM\TAZOBACTAM SODIUM [Suspect]
     Active Substance: PIPERACILLIN SODIUM\TAZOBACTAM SODIUM
     Indication: Respiratory arrest
     Route: 065
  29. PENICILLIN V [Suspect]
     Active Substance: PENICILLIN V
     Indication: Antibiotic therapy
     Dosage: UNK
     Route: 065
  30. POTASSIUM CHLORIDE [Suspect]
     Active Substance: POTASSIUM CHLORIDE
     Indication: Pneumonia
     Route: 065
  31. CLAVULANATE POTASSIUM [Suspect]
     Active Substance: CLAVULANATE POTASSIUM
     Indication: Product used for unknown indication
     Dosage: UNK
     Route: 065
  32. PROPOFOL [Suspect]
     Active Substance: PROPOFOL
     Indication: Product used for unknown indication
     Dosage: UNK
     Route: 065
  33. PULMOZYME [Suspect]
     Active Substance: DORNASE ALFA
     Indication: Interstitial lung disease
     Dosage: UNK
     Route: 065
  34. SODIUM CHLORIDE [Suspect]
     Active Substance: SODIUM CHLORIDE
     Indication: Product used for unknown indication
     Route: 065
  35. TRISODIUM CITRATE DIHYDRATE [Suspect]
     Active Substance: TRISODIUM CITRATE DIHYDRATE
     Indication: Pneumonia
     Dosage: UNKNOWN
     Route: 065
  36. VENTOLIN [Suspect]
     Active Substance: ALBUTEROL SULFATE
     Indication: Product used for unknown indication
     Route: 016

REACTIONS (62)
  - Tachypnoea [Fatal]
  - Interstitial lung disease [Fatal]
  - Stoma closure [Fatal]
  - Cerebral ischaemia [Fatal]
  - Mechanical ventilation [Fatal]
  - Pyrexia [Fatal]
  - Dysphagia [Fatal]
  - Respiratory tract infection bacterial [Fatal]
  - Positive airway pressure therapy [Fatal]
  - Secretion discharge [Fatal]
  - Secretion discharge [Fatal]
  - Vomiting [Fatal]
  - Lung consolidation [Fatal]
  - Atelectasis [Fatal]
  - Pneumococcal sepsis [Fatal]
  - Lung infiltration [Fatal]
  - Pneumonia aspiration [Fatal]
  - Injury [Fatal]
  - Brain injury [Fatal]
  - Bronchial disorder [Fatal]
  - Ascites [Fatal]
  - Dysphagia [Fatal]
  - Dyspnoea [Fatal]
  - Motor neurone disease [Fatal]
  - Stoma closure [Fatal]
  - Metabolic disorder [Fatal]
  - Muscle atrophy [Fatal]
  - Intestinal ischaemia [Fatal]
  - Scoliosis [Fatal]
  - Chest X-ray abnormal [Fatal]
  - Inflammation [Fatal]
  - Respiratory arrest [Fatal]
  - Interstitial lung disease [Fatal]
  - Positive airway pressure therapy [Fatal]
  - Ischaemic cerebral infarction [Fatal]
  - Resuscitation [Fatal]
  - Circulatory collapse [Fatal]
  - Malaise [Fatal]
  - Pneumonia [Fatal]
  - Motor neurone disease [Fatal]
  - Lower respiratory tract infection bacterial [Fatal]
  - Dehydration [Fatal]
  - Endotracheal intubation [Fatal]
  - Intestinal ischaemia [Fatal]
  - Sputum increased [Fatal]
  - Spinal muscular atrophy [Fatal]
  - Lymphadenectomy [Fatal]
  - Dehydration [Fatal]
  - Injury [Fatal]
  - Muscular weakness [Fatal]
  - Disease complication [Fatal]
  - Diarrhoea [Fatal]
  - Dehydration [Fatal]
  - Endotracheal intubation [Fatal]
  - Dyspnoea [Fatal]
  - Motor dysfunction [Fatal]
  - Positive airway pressure therapy [Fatal]
  - Brain injury [Fatal]
  - Chest X-ray abnormal [Fatal]
  - Increased bronchial secretion [Fatal]
  - Demyelination [Fatal]
  - Pneumonia [Recovered/Resolved]

NARRATIVE: CASE EVENT DATE: 20160620
